FAERS Safety Report 6429619-3 (Version None)
Quarter: 2009Q4

REPORT INFORMATION
  Report Type: 
  Country: None (occurrence: None)
  Receive Date: 20091103
  Receipt Date: 20091019
  Transmission Date: 20100525
  Serious: Yes (Hospitalization)
  Sender: FDA-Public Use
  Company Number: 02100-JPN-06-0052

PATIENT
  Age: 75 Year
  Sex: Male
  Weight: 52 kg

DRUGS (14)
  1. PLETAL [Suspect]
     Indication: CEREBRAL INFARCTION
     Dosage: 81 MG, QD, ORAL
     Route: 048
     Dates: start: 20050101, end: 20050107
  2. PLETAL [Suspect]
     Indication: CEREBRAL INFARCTION
     Dosage: 81 MG, QD, ORAL
     Route: 048
     Dates: start: 20050107, end: 20060211
  3. GLIMICRON (GLICLAZIDE) TABLET [Concomitant]
  4. GLUCOBAY [Concomitant]
  5. MAGNESIUM OXIDE (MAGNESIUM OXIDE) [Concomitant]
  6. NEUROTROPIN (ORGAN LYSATE, STANDARDIZED) TABLET [Concomitant]
  7. MOHRUS (KETOPROFEN) TAPE (INCLUDING POULTICE) [Concomitant]
  8. MUCOSTA (REBAMIPIDE) TABLET [Concomitant]
  9. BLOPRESS (CANDESARTAN CILEXETIL) TABLET [Concomitant]
  10. VOLTAREN [Concomitant]
  11. VOLTAREN (DICLOFENAC SODIUM) OINTMENT, CREAM [Concomitant]
  12. ACTOS [Concomitant]
  13. CATALIN K (PIRENOXINE) EYE DROPS [Concomitant]
  14. BUP-4 (PROPIVERINE HYDROCHLORIDE) TABLET [Concomitant]

REACTIONS (6)
  - BLOOD GLUCOSE INCREASED [None]
  - BLOOD UREA INCREASED [None]
  - GASTRIC ULCER HAEMORRHAGE [None]
  - HEADACHE [None]
  - HYPOAESTHESIA [None]
  - THIRST [None]
